FAERS Safety Report 7392688-0 (Version None)
Quarter: 2011Q2

REPORT INFORMATION
  Report Type: 
  Country: None (occurrence: None)
  Receive Date: 20110404
  Receipt Date: 20110322
  Transmission Date: 20111010
  Serious: Yes (Other)
  Sender: FDA-Public Use
  Company Number: US-JNJFOC-20110400628

PATIENT

DRUGS (2)
  1. ASPIRIN [Suspect]
     Indication: IMMUNE TOLERANCE INDUCTION
     Dosage: TITRATED TO 325MG
     Route: 065
  2. KETOROLAC [Suspect]
     Indication: IMMUNE TOLERANCE INDUCTION
     Route: 045

REACTIONS (2)
  - PHARYNGEAL OEDEMA [None]
  - RASH [None]
